FAERS Safety Report 23618451 (Version 1)
Quarter: 2024Q1

REPORT INFORMATION
  Report Type: Spontaneous
  Country: ES (occurrence: ES)
  Receive Date: 20240311
  Receipt Date: 20240311
  Transmission Date: 20240410
  Serious: Yes (Other)
  Sender: FDA-Public Use
  Company Number: ES-STERISCIENCE B.V.-2024-ST-000220

PATIENT
  Age: 39 Year
  Sex: Female

DRUGS (14)
  1. MIDAZOLAM [Suspect]
     Active Substance: MIDAZOLAM
     Indication: Status epilepticus
     Dosage: 12 MILLILITER, QH
     Route: 065
  2. LEVETIRACETAM [Suspect]
     Active Substance: LEVETIRACETAM
     Indication: Generalised tonic-clonic seizure
     Dosage: UNK
     Route: 065
  3. LEVETIRACETAM [Suspect]
     Active Substance: LEVETIRACETAM
     Dosage: 4000 MILLIGRAM, QD
     Route: 065
  4. LACOSAMIDE [Suspect]
     Active Substance: LACOSAMIDE
     Indication: Status epilepticus
     Dosage: 200 MILLIGRAM, BID
     Route: 065
  5. BRIVARACETAM [Suspect]
     Active Substance: BRIVARACETAM
     Indication: Status epilepticus
     Dosage: 100 MILLIGRAM, BID
     Route: 065
  6. PERAMPANEL [Suspect]
     Active Substance: PERAMPANEL
     Indication: Status epilepticus
     Dosage: 12 MILLIGRAM
     Route: 065
  7. HUMAN IMMUNOGLOBULIN G [Suspect]
     Active Substance: HUMAN IMMUNOGLOBULIN G
     Indication: Status epilepticus
     Dosage: 0.7 GRAM PER KILOGRAM
     Route: 065
  8. PROPOFOL [Suspect]
     Active Substance: PROPOFOL
     Indication: Status epilepticus
     Dosage: 15 MILLILITER, QH
     Route: 065
  9. VALPROIC ACID [Suspect]
     Active Substance: VALPROIC ACID
     Indication: Status epilepticus
     Dosage: 4800 MILLIGRAM, QD
     Route: 065
  10. PHENYTOIN [Concomitant]
     Active Substance: PHENYTOIN
     Indication: Status epilepticus
     Dosage: 100 MILLIGRAM, Q8H
     Route: 065
  11. THIOPENTAL [Concomitant]
     Active Substance: THIOPENTAL
     Indication: Status epilepticus
     Dosage: 5 MILLIGRAM/KILOGRAM, QH
     Route: 065
  12. PHENOBARBITAL [Concomitant]
     Active Substance: PHENOBARBITAL
     Indication: Status epilepticus
     Dosage: UNK
     Route: 065
  13. Immunoglobulin [Concomitant]
     Indication: Status epilepticus
     Dosage: 0.7 GRAM PER KILOGRAM, QD (SECOND CYCLE)
  14. METHYLPREDNISOLONE [Concomitant]
     Active Substance: METHYLPREDNISOLONE
     Indication: Status epilepticus
     Dosage: UNK
     Route: 065

REACTIONS (3)
  - Premature delivery [Unknown]
  - Drug ineffective for unapproved indication [Unknown]
  - Maternal exposure during pregnancy [Unknown]
